FAERS Safety Report 23681619 (Version 2)
Quarter: 2024Q2

REPORT INFORMATION
  Report Type: Report from Study
  Country: CO (occurrence: CO)
  Receive Date: 20240328
  Receipt Date: 20240418
  Transmission Date: 20240716
  Serious: Yes (Hospitalization, Other)
  Sender: FDA-Public Use
  Company Number: CO-ASTELLAS-2024US009199

PATIENT
  Age: 38 Year
  Sex: Female

DRUGS (2)
  1. TACROLIMUS [Suspect]
     Active Substance: TACROLIMUS
     Indication: Renal transplant
     Dosage: 6 MG, ONCE DAILY (TACROLIMUS 1 MG (1 CAPSULE) AND TACROLIMUS 5 MG (1 CAPSULE)
     Route: 048
     Dates: start: 2014, end: 202403
  2. TACROLIMUS [Suspect]
     Active Substance: TACROLIMUS
     Dosage: 8 MG, ONCE DAILY (TACROLIMUS 1 MG (3 CAPSULES) AND TACROLIMUS 5 MG (1 CAPSULE))
     Route: 048

REACTIONS (6)
  - Discomfort [Unknown]
  - Headache [Unknown]
  - Tooth infection [Recovered/Resolved]
  - Toothache [Recovered/Resolved]
  - Sinusitis [Recovered/Resolved]
  - Kidney transplant rejection [Recovered/Resolved with Sequelae]
